FAERS Safety Report 13718483 (Version 3)
Quarter: 2017Q3

REPORT INFORMATION
  Report Type: Report from Study
  Country: US (occurrence: US)
  Receive Date: 20170705
  Receipt Date: 20170905
  Transmission Date: 20171127
  Serious: Yes (Hospitalization, Other)
  Sender: FDA-Public Use
  Company Number: US-ARIAD PHARMACEUTICALS, INC-2017US008473

PATIENT
  Sex: Female

DRUGS (3)
  1. ICLUSIG [Suspect]
     Active Substance: PONATINIB
     Dosage: 30 MG, QD
     Route: 048
  2. ICLUSIG [Suspect]
     Active Substance: PONATINIB
     Indication: CHRONIC MYELOID LEUKAEMIA
     Dosage: 45 MG, QD
     Route: 048
     Dates: start: 20170621, end: 20170625
  3. ICLUSIG [Suspect]
     Active Substance: PONATINIB
     Dosage: 30 MG, QD
     Route: 048

REACTIONS (11)
  - Anaemia [Unknown]
  - Fatigue [Unknown]
  - White blood cell count decreased [Unknown]
  - Dry mouth [Unknown]
  - Thrombocytopenia [Not Recovered/Not Resolved]
  - Pancreatitis acute [Unknown]
  - Bone pain [Unknown]
  - Blast crisis in myelogenous leukaemia [Unknown]
  - Haemoglobin decreased [Unknown]
  - Hunger [Unknown]
  - Hypertension [Unknown]
